FAERS Safety Report 9877059 (Version 5)
Quarter: 2014Q2

REPORT INFORMATION
  Report Type: Spontaneous
  Country: US (occurrence: US)
  Receive Date: 20140206
  Receipt Date: 20140508
  Transmission Date: 20141212
  Serious: Yes (Hospitalization)
  Sender: FDA-Public Use
  Company Number: US-PFIZER INC-2014034580

PATIENT
  Age: 61 Year
  Sex: Female
  Weight: 90.7 kg

DRUGS (5)
  1. LYRICA [Suspect]
     Indication: ANXIETY
     Dosage: 300 MG, DAILY
     Route: 048
     Dates: start: 2013
  2. LYRICA [Suspect]
     Indication: MOOD ALTERED
     Dosage: 25 MG, UNK
     Route: 048
  3. LYRICA [Suspect]
     Dosage: 50 MG, UNK
     Route: 048
  4. LYRICA [Suspect]
     Dosage: UNK, DOSE INCREASED
     Route: 048
  5. LANTUS [Concomitant]
     Indication: DIABETES MELLITUS
     Dosage: 30 IU, DAILY

REACTIONS (5)
  - Depression [Unknown]
  - Viral infection [Unknown]
  - Nausea [Unknown]
  - Drug prescribing error [Unknown]
  - Hypersensitivity [Unknown]
